FAERS Safety Report 7052703-0 (Version None)
Quarter: 2010Q4

REPORT INFORMATION
  Report Type: 
  Country: None (occurrence: None)
  Receive Date: 20101012
  Receipt Date: 20101005
  Transmission Date: 20110411
  Serious: Yes (Hospitalization)
  Sender: FDA-Public Use
  Company Number: 2009-199324-NL

PATIENT
  Age: 32 Year
  Sex: Female
  Weight: 77.1115 kg

DRUGS (5)
  1. NUVARING [Suspect]
     Indication: CONTRACEPTION
     Dates: start: 20080926, end: 20081230
  2. LEVOTHYROXINE [Concomitant]
  3. IBUPROFEN [Concomitant]
  4. FUROSEMIDE [Concomitant]
  5. ZITHROMAX [Concomitant]

REACTIONS (16)
  - ANXIETY [None]
  - ARTHRALGIA [None]
  - BLOOD POTASSIUM DECREASED [None]
  - BLOOD PRESSURE INCREASED [None]
  - CEREBRAL INFARCTION [None]
  - CEREBROVASCULAR ACCIDENT [None]
  - FLUID RETENTION [None]
  - HEART RATE INCREASED [None]
  - HYPERSOMNIA [None]
  - HYPERVENTILATION [None]
  - MUSCLE SPASMS [None]
  - NEURALGIA [None]
  - OEDEMA PERIPHERAL [None]
  - PAIN IN EXTREMITY [None]
  - PHARYNGITIS [None]
  - TEMPERATURE INTOLERANCE [None]
